FAERS Safety Report 6050151-3 (Version None)
Quarter: 2009Q1

REPORT INFORMATION
  Report Type: 
  Country: None (occurrence: None)
  Receive Date: 20090122
  Receipt Date: 20090122
  Transmission Date: 20090719
  Serious: Yes (Other)
  Sender: FDA-Public Use
  Company Number: None

PATIENT
  Age: 38 Year
  Sex: Male
  Weight: 127.0072 kg

DRUGS (1)
  1. ATRIPLA [Suspect]
     Indication: HIV INFECTION
     Dates: start: 20080917, end: 20081118

REACTIONS (16)
  - ABNORMAL BEHAVIOUR [None]
  - ABNORMAL DREAMS [None]
  - BIPOLAR DISORDER [None]
  - CONDITION AGGRAVATED [None]
  - DELUSION [None]
  - DEPRESSION [None]
  - DISINHIBITION [None]
  - DISTURBANCE IN ATTENTION [None]
  - DIZZINESS [None]
  - FEELING ABNORMAL [None]
  - JOB DISSATISFACTION [None]
  - LOSS OF EMPLOYMENT [None]
  - MANIA [None]
  - MENTAL DISORDER [None]
  - PARANOIA [None]
  - SUICIDAL IDEATION [None]
